FAERS Safety Report 21668064 (Version 1)
Quarter: 2022Q4

REPORT INFORMATION
  Report Type: Spontaneous
  Country: ES (occurrence: ES)
  Receive Date: 20221201
  Receipt Date: 20221201
  Transmission Date: 20230113
  Serious: Yes (Hospitalization, Other)
  Sender: FDA-Public Use
  Company Number: None

PATIENT
  Age: 70 Year
  Sex: Female

DRUGS (2)
  1. OXALIPLATIN [Suspect]
     Active Substance: OXALIPLATIN
     Indication: Colon neoplasm
     Dosage: UNK
     Route: 048
     Dates: start: 20220808, end: 20220919
  2. CAPECITABINE [Concomitant]
     Active Substance: CAPECITABINE
     Indication: Colon neoplasm
     Dates: start: 202208, end: 202209

REACTIONS (1)
  - Pneumonitis chemical [Recovering/Resolving]

NARRATIVE: CASE EVENT DATE: 20221004
